FAERS Safety Report 5840355-4 (Version None)
Quarter: 2008Q3

REPORT INFORMATION
  Report Type: 
  Country: None (occurrence: None)
  Receive Date: 20080811
  Receipt Date: 20080806
  Transmission Date: 20090109
  Serious: Yes (Other)
  Sender: FDA-Public Use
  Company Number: JP-MERCK-0807USA03615

PATIENT
  Age: 23 Year
  Sex: Male
  Weight: 73 kg

DRUGS (2)
  1. CRAVIT [Concomitant]
     Route: 065
  2. PEPCID RPD [Suspect]
     Route: 048

REACTIONS (2)
  - IRIDOCYCLITIS [None]
  - TUBULOINTERSTITIAL NEPHRITIS [None]
